FAERS Safety Report 24656077 (Version 5)
Quarter: 2025Q2

REPORT INFORMATION
  Report Type: Spontaneous
  Country: US (occurrence: US)
  Receive Date: 20241124
  Receipt Date: 20250616
  Transmission Date: 20250717
  Serious: Yes (Hospitalization)
  Sender: SANOFI AVENTIS
  Company Number: US-SA-2024SA340789

PATIENT
  Age: 66 Year
  Sex: Female

DRUGS (25)
  1. DUPIXENT [Suspect]
     Active Substance: DUPILUMAB
     Indication: Asthma
     Dosage: 300 MG, QOW
     Route: 058
     Dates: start: 20240523
  2. AZITHROMYCIN [Concomitant]
     Active Substance: AZITHROMYCIN
  3. BREO ELLIPTA [Concomitant]
     Active Substance: FLUTICASONE FUROATE\VILANTEROL TRIFENATATE
  4. BREO ELLIPTA [Concomitant]
     Active Substance: FLUTICASONE FUROATE\VILANTEROL TRIFENATATE
  5. OZEMPIC [Concomitant]
     Active Substance: SEMAGLUTIDE
  6. ACETAMINOPHEN [Concomitant]
     Active Substance: ACETAMINOPHEN
  7. ACETAMINOPHEN [Concomitant]
     Active Substance: ACETAMINOPHEN
  8. METHYLPHENIDATE [Concomitant]
     Active Substance: METHYLPHENIDATE
  9. OXYCODONE [Concomitant]
     Active Substance: OXYCODONE
  10. CYCLOBENZAPRINE [Concomitant]
     Active Substance: CYCLOBENZAPRINE
  11. TRAMADOL HCL [Concomitant]
     Active Substance: TRAMADOL HYDROCHLORIDE
  12. OMEPRAZOLE [Concomitant]
     Active Substance: OMEPRAZOLE
  13. MONTELUKAST [Concomitant]
     Active Substance: MONTELUKAST
  14. ESZOPICLONE [Concomitant]
     Active Substance: ESZOPICLONE
  15. ESZOPICLONE [Concomitant]
     Active Substance: ESZOPICLONE
  16. HYDROCHLOROTHIAZIDE [Concomitant]
     Active Substance: HYDROCHLOROTHIAZIDE
  17. HYDROCHLOROTHIAZIDE [Concomitant]
     Active Substance: HYDROCHLOROTHIAZIDE
  18. METHOCARBAMOL [Concomitant]
     Active Substance: METHOCARBAMOL
  19. HYDROCHLOROTHIAZIDE [Concomitant]
     Active Substance: HYDROCHLOROTHIAZIDE
  20. DICLOFENAC [Concomitant]
     Active Substance: DICLOFENAC
  21. XARELTO [Concomitant]
     Active Substance: RIVAROXABAN
  22. HYDROCHLOROTHIAZIDE [Concomitant]
     Active Substance: HYDROCHLOROTHIAZIDE
  23. ACETAMINOPHEN [Concomitant]
     Active Substance: ACETAMINOPHEN
  24. METHYLPHENIDATE HYDROCHLORIDE [Concomitant]
     Active Substance: METHYLPHENIDATE HYDROCHLORIDE
  25. CARBAM [Concomitant]

REACTIONS (6)
  - Surgery [Unknown]
  - Impaired quality of life [Unknown]
  - Oral herpes [Unknown]
  - Eye irritation [Unknown]
  - Asthma [Unknown]
  - Drug ineffective [Unknown]

NARRATIVE: CASE EVENT DATE: 20240101
